FAERS Safety Report 12186953 (Version 2)
Quarter: 2016Q2

REPORT INFORMATION
  Report Type: Spontaneous
  Country: US (occurrence: US)
  Receive Date: 20160317
  Receipt Date: 20160425
  Transmission Date: 20160815
  Serious: Yes (Other)
  Sender: FDA-Public Use
  Company Number: US-SA-2016SA052912

PATIENT
  Age: 69 Year
  Sex: Female
  Weight: 71.2 kg

DRUGS (21)
  1. ALIROCUMAB PREFILLED PEN [Concomitant]
     Active Substance: ALIROCUMAB
     Indication: TYPE IIA HYPERLIPIDAEMIA
     Dates: start: 20160216, end: 20160301
  2. REPATHA [Concomitant]
     Active Substance: EVOLOCUMAB
  3. METHYLSULFONYLMETHANE [Concomitant]
     Active Substance: DIMETHYL SULFONE
     Route: 048
  4. PANTOTHENIC ACID [Concomitant]
     Active Substance: PANTOTHENIC ACID
     Route: 048
  5. VITAMIN D3 [Concomitant]
     Active Substance: CHOLECALCIFEROL
     Dosage: DOSE:50000 UNIT(S)
     Route: 048
  6. DHEA [Concomitant]
     Active Substance: PRASTERONE
     Route: 048
  7. CALAMINE [Concomitant]
     Active Substance: CALAMINE\FERRIC OXIDE RED\ZINC OXIDE
  8. HYZAAR [Concomitant]
     Active Substance: HYDROCHLOROTHIAZIDE\LOSARTAN POTASSIUM
     Route: 048
  9. PRALUENT [Suspect]
     Active Substance: ALIROCUMAB
     Indication: TYPE IIA HYPERLIPIDAEMIA
     Route: 058
     Dates: start: 20160216, end: 20160301
  10. PRAMOXINE HYDROCHLORIDE. [Concomitant]
     Active Substance: PRAMOXINE HYDROCHLORIDE
     Dosage: FORM: LOTION
  11. ARMOUR THYROID [Concomitant]
     Active Substance: THYROID, PORCINE
     Route: 048
  12. VITAMIN B12 [Concomitant]
     Active Substance: CYANOCOBALAMIN
     Route: 048
  13. MAGNESIUM CITRATE. [Concomitant]
     Active Substance: MAGNESIUM CITRATE
     Route: 048
  14. VITAMIN K [Concomitant]
     Active Substance: PHYTONADIONE
     Route: 048
  15. EVOLOCUMAB [Concomitant]
     Active Substance: EVOLOCUMAB
  16. ASPIRIN. [Concomitant]
     Active Substance: ASPIRIN
     Route: 048
  17. NIACIN. [Concomitant]
     Active Substance: NIACIN
     Route: 048
  18. VITAMIN B6 [Concomitant]
     Active Substance: PYRIDOXINE HYDROCHLORIDE
     Route: 048
  19. SPIRONOLACTONE. [Concomitant]
     Active Substance: SPIRONOLACTONE
     Route: 048
  20. L-LYSINE [Concomitant]
     Active Substance: LYSINE
     Route: 048
  21. PREGNENOLONE [Concomitant]
     Active Substance: PREGNENOLONE
     Route: 048

REACTIONS (6)
  - Anaphylactic reaction [Unknown]
  - Dyspnoea [Recovered/Resolved]
  - Influenza like illness [Recovering/Resolving]
  - Rash papular [Recovering/Resolving]
  - Rhinorrhoea [Recovering/Resolving]
  - Pharyngeal oedema [Recovered/Resolved]
